FAERS Safety Report 4650954-3 (Version None)
Quarter: 2005Q2

REPORT INFORMATION
  Report Type: 
  Country: None (occurrence: None)
  Receive Date: 20050426
  Receipt Date: 20050411
  Transmission Date: 20051028
  Serious: Yes (Hospitalization)
  Sender: FDA-Public Use
  Company Number: 602364

PATIENT
  Sex: Male

DRUGS (1)
  1. FEIBA VH IMMUNO [Suspect]
     Indication: FACTOR VIII DEFICIENCY
     Dosage: 75 MG/KG; QOD

REACTIONS (2)
  - CENTRAL LINE INFECTION [None]
  - STAPHYLOCOCCAL INFECTION [None]
